FAERS Safety Report 10191777 (Version 2)
Quarter: 2014Q2

REPORT INFORMATION
  Report Type: Spontaneous
  Country: CA (occurrence: CA)
  Receive Date: 20140523
  Receipt Date: 20140606
  Transmission Date: 20141212
  Serious: Yes (Other)
  Sender: FDA-Public Use
  Company Number: CA-AMGEN-CANSP2014036213

PATIENT
  Age: 84 Year
  Sex: Female

DRUGS (7)
  1. PROLIA [Suspect]
     Indication: OSTEOPOROSIS
     Dosage: UNK
     Route: 065
     Dates: start: 20110310, end: 20131009
  2. RATIO-LENOLTEC NO 2 [Concomitant]
     Indication: ARTHRITIS
  3. TRIAMTERENE [Concomitant]
     Indication: HYPERTENSION
     Dosage: 50/25
  4. NIFEDIPINE [Concomitant]
     Indication: BLOOD PRESSURE
  5. NIFEDIPINE [Concomitant]
     Indication: CARDIAC DISORDER
  6. LEVOCARB [Concomitant]
     Indication: PARKINSON^S DISEASE
  7. CELEBREX [Concomitant]
     Indication: INFLAMMATION

REACTIONS (2)
  - Spinal fracture [Unknown]
  - Drug ineffective [Unknown]
